FAERS Safety Report 9293513 (Version 1)
Quarter: 2013Q2

REPORT INFORMATION
  Report Type: Spontaneous
  Country: FR (occurrence: FR)
  Receive Date: 20130516
  Receipt Date: 20130516
  Transmission Date: 20140414
  Serious: Yes (Hospitalization)
  Sender: FDA-Public Use
  Company Number: FR-BAXTER-2012BAX000022

PATIENT
  Age: 16 Year
  Sex: Female

DRUGS (13)
  1. HOLOXAN 2000 MG, POUDRE POUR USAGE PARENT?RAL [Suspect]
     Indication: T-CELL TYPE ACUTE LEUKAEMIA
     Route: 042
     Dates: start: 20120120, end: 20120124
  2. UROMITEXAN 5 G/50 ML, SOLUTION INJECTABLE POUR PERFUSION EN FLACON [Suspect]
     Indication: T-CELL TYPE ACUTE LEUKAEMIA
     Route: 042
     Dates: start: 20120120, end: 20120124
  3. METHOTREXATE [Suspect]
     Indication: T-CELL TYPE ACUTE LEUKAEMIA
     Route: 042
     Dates: start: 20120120, end: 20120120
  4. ELDISINE [Suspect]
     Indication: T-CELL TYPE ACUTE LEUKAEMIA
     Route: 042
     Dates: start: 20120120, end: 20120120
  5. CERUBIDINE [Suspect]
     Indication: T-CELL TYPE ACUTE LEUKAEMIA
     Route: 042
     Dates: start: 20120124, end: 20120124
  6. ARACYTINE [Suspect]
     Indication: T-CELL TYPE ACUTE LEUKAEMIA
     Route: 037
     Dates: start: 20120121, end: 20120126
  7. METHOTREXATE [Suspect]
     Indication: T-CELL TYPE ACUTE LEUKAEMIA
     Route: 037
     Dates: start: 20120121, end: 20120126
  8. METHOTREXATE [Suspect]
     Route: 037
     Dates: start: 20120126
  9. HYDROCORTISONE [Suspect]
     Indication: T-CELL TYPE ACUTE LEUKAEMIA
     Route: 037
     Dates: start: 20120121, end: 20120126
  10. HYDROCORTISONE [Suspect]
     Route: 037
     Dates: start: 20120126
  11. FUROSEMIDE [Concomitant]
     Indication: PRODUCT USED FOR UNKNOWN INDICATION
     Route: 065
     Dates: start: 20120120, end: 20120124
  12. CALCIUM LEVOFOLINATE [Concomitant]
     Indication: PRODUCT USED FOR UNKNOWN INDICATION
     Route: 065
     Dates: start: 20120121, end: 20120122
  13. G-CSF [Concomitant]
     Indication: PRODUCT USED FOR UNKNOWN INDICATION
     Route: 065
     Dates: start: 20120101

REACTIONS (1)
  - Dermatitis bullous [Recovered/Resolved with Sequelae]
